FAERS Safety Report 8040834-8 (Version None)
Quarter: 2012Q1

REPORT INFORMATION
  Report Type: 
  Country: None (occurrence: None)
  Receive Date: 20120112
  Receipt Date: 20120110
  Transmission Date: 20120608
  Serious: Yes (Other)
  Sender: FDA-Public Use
  Company Number: BR-ACCORD-011982

PATIENT
  Age: 49 Year
  Sex: Male
  Weight: 71 kg

DRUGS (4)
  1. ONDANSETRON [Concomitant]
     Route: 042
     Dates: start: 20111229, end: 20111229
  2. DEXAMETHASONE TAB [Concomitant]
     Route: 042
     Dates: start: 20111229, end: 20111229
  3. IRINOTECAN HCL [Suspect]
     Dosage: DAY 1 OF CYCLE 2
     Route: 042
     Dates: start: 20111229, end: 20111229
  4. ATROPINE [Concomitant]
     Route: 042
     Dates: start: 20111229, end: 20111229

REACTIONS (1)
  - TYPE II HYPERSENSITIVITY [None]
